FAERS Safety Report 25216678 (Version 2)
Quarter: 2025Q2

REPORT INFORMATION
  Report Type: Spontaneous
  Country: US (occurrence: US)
  Receive Date: 20250419
  Receipt Date: 20250428
  Transmission Date: 20250716
  Serious: Yes (Disabling, Other)
  Sender: MACLEODS
  Company Number: US-MACLEODS PHARMA-MAC2025052659

PATIENT

DRUGS (1)
  1. TRIAMCINOLONE [Suspect]
     Active Substance: TRIAMCINOLONE
     Indication: Keloid scar
     Route: 026

REACTIONS (5)
  - Blindness unilateral [Recovering/Resolving]
  - Retinal vein occlusion [Recovering/Resolving]
  - Ischaemia [Recovering/Resolving]
  - Retinal artery occlusion [Recovering/Resolving]
  - Retinal haemorrhage [Recovered/Resolved]
